FAERS Safety Report 5921810-5 (Version None)
Quarter: 2008Q4

REPORT INFORMATION
  Report Type: 
  Country: None (occurrence: None)
  Receive Date: 20081017
  Receipt Date: 20081013
  Transmission Date: 20090506
  Serious: Yes (Death, Hospitalization)
  Sender: FDA-Public Use
  Company Number: US-AMGEN-QUU313171

PATIENT
  Sex: Male

DRUGS (7)
  1. NEULASTA [Suspect]
     Indication: CHEMOTHERAPY
     Route: 065
  2. ETOPOSIDE [Concomitant]
     Route: 065
  3. DOXORUBICIN HCL [Concomitant]
     Route: 065
  4. CYCLOPHOSPHAMIDE [Concomitant]
     Route: 065
  5. VINCRISTINE [Concomitant]
     Route: 065
  6. PREDNISONE TAB [Concomitant]
     Route: 065
  7. BLEOMYCIN SULFATE [Concomitant]
     Route: 065

REACTIONS (1)
  - PNEUMONITIS [None]
